FAERS Safety Report 23250999 (Version 1)
Quarter: 2023Q4

REPORT INFORMATION
  Report Type: Report from Study
  Country: US (occurrence: US)
  Receive Date: 20231201
  Receipt Date: 20231201
  Transmission Date: 20240109
  Serious: Yes (Other)
  Sender: FDA-Public Use
  Company Number: US-UCBSA-2023049355

PATIENT
  Age: 61 Year
  Sex: Male

DRUGS (2)
  1. ROZANOLIXIZUMAB [Suspect]
     Active Substance: ROZANOLIXIZUMAB
     Indication: Myasthenia gravis
     Dosage: 560 MILLIGRAM, WEEKLY (QW) FOR 6 WEEKS, CURRENTLY AT MID-CYCLE POINT OF CYCLE #1
     Route: 058
     Dates: start: 20230925
  2. ROZANOLIXIZUMAB [Suspect]
     Active Substance: ROZANOLIXIZUMAB
     Dosage: 560 MILLIGRAM, WEEKLY (QW) FOR 6 WEEKS, CYCLE #2
     Route: 058
     Dates: start: 20231121

REACTIONS (4)
  - Hernia pain [Recovered/Resolved]
  - Myasthenia gravis [Recovering/Resolving]
  - Inguinal hernia repair [Recovered/Resolved]
  - Diarrhoea [Recovering/Resolving]

NARRATIVE: CASE EVENT DATE: 20231002
